FAERS Safety Report 12649511 (Version 1)
Quarter: 2016Q3

REPORT INFORMATION
  Report Type: Report from Study
  Country: US (occurrence: US)
  Receive Date: 20160812
  Receipt Date: 20160812
  Transmission Date: 20161109
  Serious: Yes (Other)
  Sender: FDA-Public Use
  Company Number: US-ABBVIE-16P-163-1698467-00

PATIENT
  Age: 62 Year
  Sex: Male
  Weight: 88.53 kg

DRUGS (2)
  1. VIEKIRA PAK [Suspect]
     Active Substance: DASABUVIR\OMBITASVIR\PARITAPREVIR\RITONAVIR
     Indication: HEPATITIS C
     Route: 048
     Dates: start: 20160507, end: 201608
  2. XANAX [Concomitant]
     Active Substance: ALPRAZOLAM
     Indication: INSOMNIA
     Dosage: AT BEDTIME
     Route: 048

REACTIONS (7)
  - Lipoma [Not Recovered/Not Resolved]
  - Skin cancer [Unknown]
  - Weight decreased [Not Recovered/Not Resolved]
  - Appetite disorder [Unknown]
  - Platelet count decreased [Unknown]
  - Neuropathy peripheral [Not Recovered/Not Resolved]
  - Exercise lack of [Unknown]

NARRATIVE: CASE EVENT DATE: 2016
